FAERS Safety Report 10829295 (Version 1)
Quarter: 2015Q1

REPORT INFORMATION
  Report Type: Report from Study
  Country: US (occurrence: US)
  Receive Date: 20150219
  Receipt Date: 20150219
  Transmission Date: 20150721
  Serious: No
  Sender: FDA-Public Use
  Company Number: US-ABBVIE-14P-163-1187268-00

PATIENT
  Age: 55 Year
  Sex: Female

DRUGS (3)
  1. HUMIRA [Suspect]
     Active Substance: ADALIMUMAB
     Indication: RHEUMATOID ARTHRITIS
     Dates: start: 20131104, end: 201312
  2. PREMARIN [Concomitant]
     Active Substance: ESTROGENS, CONJUGATED
     Indication: PRODUCT USED FOR UNKNOWN INDICATION
  3. BENICAR HCT [Concomitant]
     Active Substance: HYDROCHLOROTHIAZIDE\OLMESARTAN MEDOXOMIL
     Indication: PRODUCT USED FOR UNKNOWN INDICATION

REACTIONS (11)
  - Malaise [Recovered/Resolved]
  - Cough [Recovered/Resolved]
  - Pharyngitis streptococcal [Recovered/Resolved]
  - Sinusitis [Recovered/Resolved]
  - Malaise [Unknown]
  - Headache [Not Recovered/Not Resolved]
  - Fatigue [Recovered/Resolved]
  - Immune system disorder [Not Recovered/Not Resolved]
  - Asthenia [Recovered/Resolved]
  - Alopecia [Recovering/Resolving]
  - Blood pressure increased [Recovering/Resolving]

NARRATIVE: CASE EVENT DATE: 2013
